FAERS Safety Report 23290916 (Version 2)
Quarter: 2023Q4

REPORT INFORMATION
  Report Type: Report from Study
  Country: JP (occurrence: JP)
  Receive Date: 20231213
  Receipt Date: 20231213
  Transmission Date: 20240109
  Serious: Yes (Other)
  Sender: FDA-Public Use
  Company Number: JP-ASTELLAS-2022JP002924

PATIENT
  Age: 75 Year
  Sex: Male
  Weight: 60.7 kg

DRUGS (24)
  1. ENFORTUMAB VEDOTIN [Suspect]
     Active Substance: ENFORTUMAB VEDOTIN
     Indication: Transitional cell carcinoma
     Route: 041
     Dates: start: 20220202, end: 20220216
  2. ENFORTUMAB VEDOTIN [Suspect]
     Active Substance: ENFORTUMAB VEDOTIN
     Route: 041
     Dates: start: 20220307, end: 20220314
  3. ENFORTUMAB VEDOTIN [Suspect]
     Active Substance: ENFORTUMAB VEDOTIN
     Route: 041
     Dates: start: 20220404, end: 20220418
  4. ENFORTUMAB VEDOTIN [Suspect]
     Active Substance: ENFORTUMAB VEDOTIN
     Route: 041
     Dates: start: 20220509, end: 20220711
  5. ENFORTUMAB VEDOTIN [Suspect]
     Active Substance: ENFORTUMAB VEDOTIN
     Route: 041
     Dates: start: 20220801, end: 20220912
  6. ENFORTUMAB VEDOTIN [Suspect]
     Active Substance: ENFORTUMAB VEDOTIN
     Route: 041
     Dates: start: 20221003, end: 20221003
  7. ENFORTUMAB VEDOTIN [Suspect]
     Active Substance: ENFORTUMAB VEDOTIN
     Route: 041
     Dates: start: 20221031, end: 20221107
  8. ENFORTUMAB VEDOTIN [Suspect]
     Active Substance: ENFORTUMAB VEDOTIN
     Route: 041
     Dates: start: 20221128, end: 20221212
  9. ENFORTUMAB VEDOTIN [Suspect]
     Active Substance: ENFORTUMAB VEDOTIN
     Route: 041
     Dates: start: 20221228, end: 20230104
  10. ENFORTUMAB VEDOTIN [Suspect]
     Active Substance: ENFORTUMAB VEDOTIN
     Route: 041
     Dates: start: 20230111, end: 20230111
  11. ENFORTUMAB VEDOTIN [Suspect]
     Active Substance: ENFORTUMAB VEDOTIN
     Route: 041
     Dates: start: 20230130, end: 20230130
  12. KEYTRUDA [Suspect]
     Active Substance: PEMBROLIZUMAB
     Indication: Transitional cell carcinoma
     Dosage: UNK UNK, UNKNOWN FREQ.
     Route: 065
  13. CLARITHROMYCIN [Suspect]
     Active Substance: CLARITHROMYCIN
     Indication: Sinusitis
     Route: 048
     Dates: start: 2003, end: 20230411
  14. CALONAL [Concomitant]
     Active Substance: ACETAMINOPHEN
     Indication: Headache
     Dosage: UNK UNK, UNKNOWN FREQ.
     Route: 048
  15. METOCLOPRAMIDE [Concomitant]
     Active Substance: METOCLOPRAMIDE
     Indication: Decreased appetite
     Route: 048
     Dates: start: 20220516, end: 20230411
  16. FAMOTIDINE [Concomitant]
     Active Substance: FAMOTIDINE
     Indication: Nausea
     Dosage: UNK UNK, UNKNOWN FREQ.
     Route: 048
  17. DIPHENHYDRAMINE [Concomitant]
     Active Substance: DIPHENHYDRAMINE
     Indication: Pruritus
     Dosage: APPROPRIATE DOSE, TWICE DAILY
     Route: 061
     Dates: start: 20220206, end: 20220911
  18. DIPHENHYDRAMINE [Concomitant]
     Active Substance: DIPHENHYDRAMINE
     Indication: Erythema
  19. Myser [Concomitant]
     Indication: Pruritus
     Dosage: APPROPRIATE DOSE, TWICE DAILY
     Route: 061
     Dates: start: 20220216, end: 20220306
  20. Myser [Concomitant]
     Indication: Erythema
  21. FELBINAC [Concomitant]
     Active Substance: FELBINAC
     Indication: Pruritus
     Dosage: APPROPRIATE DOSE, ONCE DAILY
     Route: 065
     Dates: start: 20220509, end: 20221231
  22. HEPARINOID [Concomitant]
     Indication: Pruritus
     Dosage: APPROPRIATE DOSE, ONCE DAILY
     Route: 065
     Dates: start: 20220216, end: 20230411
  23. BETAMETHASONE DIPROPIONATE [Concomitant]
     Active Substance: BETAMETHASONE DIPROPIONATE
     Indication: Erythema
     Dosage: APPROPRIATE DOSE, ONCE DAILY
     Route: 065
     Dates: start: 20220307, end: 20220912
  24. HERBALS [Concomitant]
     Active Substance: HERBALS
     Indication: Malaise
     Route: 048
     Dates: start: 20220404, end: 20220911

REACTIONS (10)
  - Infusion site discharge [Recovered/Resolved]
  - Eosinophilia [Recovered/Resolved]
  - Depressive symptom [Recovering/Resolving]
  - Malaise [Not Recovered/Not Resolved]
  - Pruritus [Recovered/Resolved]
  - Decreased appetite [Recovering/Resolving]
  - Erythema [Recovered/Resolved]
  - Alopecia [Recovering/Resolving]
  - Hypoaesthesia [Recovering/Resolving]
  - Inappropriate schedule of product administration [Unknown]

NARRATIVE: CASE EVENT DATE: 20220203
